FAERS Safety Report 5581366-6 (Version None)
Quarter: 2008Q1

REPORT INFORMATION
  Report Type: 
  Country: None (occurrence: None)
  Receive Date: 20080104
  Receipt Date: 20071019
  Transmission Date: 20080703
  Serious: No
  Sender: FDA-Public Use
  Company Number: US-BAYER-US-2007-040206

PATIENT
  Age: 33 Year
  Sex: Female
  Weight: 75 kg

DRUGS (3)
  1. YAZ [Suspect]
     Indication: CONTRACEPTION
     Route: 048
     Dates: start: 20060101, end: 20071019
  2. CLARITIN [Concomitant]
     Indication: SEASONAL ALLERGY
  3. BENADRYL [Concomitant]

REACTIONS (3)
  - BLISTER [None]
  - PHOTOSENSITIVITY REACTION [None]
  - URTICARIA [None]
